FAERS Safety Report 5620812-6 (Version None)
Quarter: 2008Q1

REPORT INFORMATION
  Report Type: 
  Country: None (occurrence: None)
  Receive Date: 20080208
  Receipt Date: 20080129
  Transmission Date: 20080703
  Serious: Yes (Other)
  Sender: FDA-Public Use
  Company Number: FR-PFIZER INC-2008007217

PATIENT
  Sex: Male

DRUGS (6)
  1. EPLERENONE [Suspect]
     Indication: HYPERTENSION
     Route: 048
     Dates: start: 20071013, end: 20071123
  2. EPLERENONE [Suspect]
     Route: 048
     Dates: start: 20071106, end: 20071123
  3. DILTIAZEM [Suspect]
     Indication: HYPERTENSION
     Route: 048
     Dates: start: 20071013, end: 20071123
  4. DILTIAZEM [Suspect]
     Route: 048
     Dates: start: 20071106, end: 20071123
  5. ALLOPURINOL [Concomitant]
  6. ROPINIROLE HCL [Concomitant]
     Route: 048

REACTIONS (2)
  - CYTOLYTIC HEPATITIS [None]
  - JAUNDICE [None]
